FAERS Safety Report 9834016 (Version 1)
Quarter: 2014Q1

REPORT INFORMATION
  Report Type: Report from Study
  Country: CA (occurrence: CA)
  Receive Date: 20140122
  Receipt Date: 20140122
  Transmission Date: 20141002
  Serious: Yes (Hospitalization)
  Sender: FDA-Public Use
  Company Number: CA-ROCHE-1334701

PATIENT
  Age: 46 Year
  Sex: Female

DRUGS (6)
  1. RIBAVIRIN [Suspect]
     Indication: CHRONIC HEPATITIS C
     Route: 048
     Dates: start: 20131022, end: 20131209
  2. TELAPREVIR [Suspect]
     Indication: CHRONIC HEPATITIS C
     Route: 048
     Dates: start: 20131022, end: 20131204
  3. ATARAX (CANADA) [Concomitant]
     Route: 065
     Dates: start: 20131029
  4. ADVIL [Concomitant]
     Route: 065
     Dates: start: 20131021
  5. TRANEXAMIC ACID [Concomitant]
  6. PEG-INTERFERON ALFA 2A [Suspect]
     Indication: CHRONIC HEPATITIS C
     Route: 058
     Dates: start: 20131021, end: 20131209

REACTIONS (1)
  - Rash [Recovering/Resolving]
